FAERS Safety Report 5989001-X (Version None)
Quarter: 2008Q4

REPORT INFORMATION
  Report Type: 
  Country: None (occurrence: None)
  Receive Date: 20081210
  Receipt Date: 20081203
  Transmission Date: 20090506
  Serious: Yes (Other)
  Sender: FDA-Public Use
  Company Number: A0759822A

PATIENT
  Age: 61 Year
  Sex: Female
  Weight: 103 kg

DRUGS (1)
  1. MELPHALAN [Suspect]
     Indication: MULTIPLE MYELOMA
     Dosage: 25MG UNKNOWN
     Route: 048
     Dates: start: 20081028

REACTIONS (5)
  - DIZZINESS [None]
  - EOSINOPHILIA [None]
  - MUSCLE SPASMS [None]
  - PAIN [None]
  - PRURITUS [None]
